FAERS Safety Report 25207454 (Version 1)
Quarter: 2025Q2

REPORT INFORMATION
  Report Type: Spontaneous
  Country: US (occurrence: None)
  Receive Date: 20250417
  Receipt Date: 20250417
  Transmission Date: 20250717
  Serious: Yes (Life-Threatening)
  Sender: FDA-CTU
  Company Number: None

PATIENT
  Age: 63 Year
  Sex: Female
  Weight: 48.08 kg

DRUGS (1)
  1. TYENNE [Suspect]
     Active Substance: TOCILIZUMAB-AAZG
     Indication: Giant cell arteritis

REACTIONS (6)
  - Injection site reaction [None]
  - Discomfort [None]
  - Urticaria [None]
  - Pruritus [None]
  - Rash papular [None]
  - Drug ineffective [None]

NARRATIVE: CASE EVENT DATE: 20250323
